FAERS Safety Report 5165261-2 (Version None)
Quarter: 2006Q4

REPORT INFORMATION
  Report Type: 
  Country: None (occurrence: None)
  Receive Date: 20061124
  Receipt Date: 20061113
  Transmission Date: 20070319
  Serious: Yes (Disabling)
  Sender: FDA-Public Use
  Company Number: 2006141510

PATIENT
  Age: 61 Year
  Sex: Female

DRUGS (4)
  1. LYRICA [Suspect]
     Indication: NEURALGIA
     Dosage: 150 MG (75 MG, 2 IN 1 D), ORAL
     Route: 048
     Dates: start: 20060921
  2. ADCAL             (CARBAZOCHROME) [Concomitant]
  3. ACETYLSALICYLIC ACID                 (ACETYLSALICYCLIC ACID) [Concomitant]
  4. ATORVASTATIN                    (ATORVASTATIN) [Concomitant]

REACTIONS (5)
  - BALANCE DISORDER [None]
  - EYE MOVEMENT DISORDER [None]
  - FALL [None]
  - SOMNOLENCE [None]
  - VISUAL DISTURBANCE [None]
